FAERS Safety Report 10029363 (Version 2)
Quarter: 2014Q2

REPORT INFORMATION
  Report Type: Report from Study
  Country: GB (occurrence: GB)
  Receive Date: 20140322
  Receipt Date: 20140409
  Transmission Date: 20141212
  Serious: Yes (Death, Hospitalization)
  Sender: FDA-Public Use
  Company Number: PHHO2014GB003922

PATIENT
  Sex: 0

DRUGS (11)
  1. BLINDED LUCENTIS [Suspect]
     Indication: MACULAR OEDEMA
     Dosage: CODE NOT BROKEN
     Route: 031
     Dates: start: 20140129, end: 20140129
  2. BLINDED NO TREATMENT RECEIVED [Suspect]
     Indication: MACULAR OEDEMA
     Dosage: CODE NOT BROKEN
     Route: 031
     Dates: start: 20140129, end: 20140129
  3. BLINDED PLACEBO [Suspect]
     Indication: MACULAR OEDEMA
     Dosage: CODE NOT BROKEN
     Route: 031
     Dates: start: 20140129, end: 20140129
  4. BLINDED LUCENTIS [Suspect]
     Dosage: CODE NOT BROKEN
     Route: 031
     Dates: start: 20140226, end: 20140226
  5. BLINDED NO TREATMENT RECEIVED [Suspect]
     Dosage: CODE NOT BROKEN
     Route: 031
     Dates: start: 20140226, end: 20140226
  6. BLINDED PLACEBO [Suspect]
     Dosage: CODE NOT BROKEN
     Route: 031
     Dates: start: 20140226, end: 20140226
  7. LEVOTHYROXINE [Concomitant]
     Indication: HYPOTHYROIDISM
     Dosage: UNK
  8. BISOPROLOL [Concomitant]
     Indication: HYPERTENSION
     Dosage: UNK
  9. ZAPAIN [Concomitant]
     Indication: MIGRAINE
     Dosage: UNK
  10. IPRATROPIUM BROMIDE [Concomitant]
     Indication: ASTHMA
     Dosage: UNK
  11. VENTOLIN [Concomitant]
     Indication: ASTHMA
     Dosage: UNK

REACTIONS (2)
  - Brain stem stroke [Fatal]
  - Basilar artery thrombosis [Fatal]
